FAERS Safety Report 6037847-4 (Version None)
Quarter: 2009Q1

REPORT INFORMATION
  Report Type: 
  Country: None (occurrence: None)
  Receive Date: 20090114
  Receipt Date: 20090114
  Transmission Date: 20090719
  Serious: No
  Sender: FDA-Public Use
  Company Number: None

PATIENT
  Age: 60 Year
  Sex: Male
  Weight: 58.9676 kg

DRUGS (4)
  1. TACLONEX SCALP [Suspect]
     Indication: ECZEMA
     Dosage: 0.005% EVERY DAY
     Dates: start: 20081017, end: 20081028
  2. TACLONEX SCALP [Suspect]
     Indication: PSORIASIS
     Dosage: 0.005% EVERY DAY
     Dates: start: 20081017, end: 20081028
  3. ALCLOMETASONE DIPROPIONATE [Suspect]
     Indication: ECZEMA
     Dosage: 0.05% EVERY DAY
     Dates: start: 20081017, end: 20081028
  4. ALCLOMETASONE DIPROPIONATE [Suspect]
     Indication: PSORIASIS
     Dosage: 0.05% EVERY DAY
     Dates: start: 20081017, end: 20081028

REACTIONS (4)
  - ANOREXIA [None]
  - ASTHENIA [None]
  - FEELING ABNORMAL [None]
  - SWELLING [None]
